FAERS Safety Report 16479302 (Version 1)
Quarter: 2019Q2

REPORT INFORMATION
  Report Type: Spontaneous
  Country: US (occurrence: US)
  Receive Date: 20190626
  Receipt Date: 20190626
  Transmission Date: 20190711
  Serious: No
  Sender: FDA-Public Use
  Company Number: US-009507513-1906USA008713

PATIENT
  Age: 26 Year
  Sex: Female

DRUGS (1)
  1. NEXPLANON [Suspect]
     Active Substance: ETONOGESTREL
     Dosage: 1 ROD, PER 3 YEARS
     Route: 059
     Dates: start: 2017

REACTIONS (4)
  - Implant site fibrosis [Unknown]
  - Encapsulation reaction [Unknown]
  - Anxiety [Unknown]
  - Complication of device removal [Not Recovered/Not Resolved]
